FAERS Safety Report 6369678-X (Version None)
Quarter: 2009Q3

REPORT INFORMATION
  Report Type: 
  Country: None (occurrence: None)
  Receive Date: 20090923
  Receipt Date: 20090728
  Transmission Date: 20100115
  Serious: Yes (Other)
  Sender: FDA-Public Use
  Company Number: FR-PFIZER INC-2009271081

PATIENT
  Age: 56 Year

DRUGS (4)
  1. ATARAX [Suspect]
     Indication: ANXIETY
     Dosage: 12.5 MG, UNK
     Route: 048
     Dates: start: 20090620, end: 20090723
  2. METRONIDAZOLE [Concomitant]
     Indication: HELICOBACTER INFECTION
     Dosage: UNK
     Route: 048
     Dates: start: 20090723
  3. INEXIUM [Concomitant]
     Indication: ULCER
     Dosage: UNK
     Route: 048
  4. DETENSIEL [Concomitant]
     Indication: HYPERTENSION
     Dosage: UNK
     Route: 048

REACTIONS (3)
  - AUTOMATISM [None]
  - DEPERSONALISATION [None]
  - DEREALISATION [None]
